FAERS Safety Report 24867199 (Version 3)
Quarter: 2025Q1

REPORT INFORMATION
  Report Type: Spontaneous
  Country: JP (occurrence: JP)
  Receive Date: 20250121
  Receipt Date: 20250212
  Transmission Date: 20250409
  Serious: Yes (Other)
  Sender: TAKEDA
  Company Number: JP-TAKEDA-2024TJP017627

PATIENT
  Age: 8 Decade
  Sex: Male

DRUGS (2)
  1. FRUZAQLA [Suspect]
     Active Substance: FRUQUINTINIB
     Indication: Colon cancer
     Dosage: 5 MILLIGRAM, QD
     Dates: start: 20241202
  2. FRUZAQLA [Suspect]
     Active Substance: FRUQUINTINIB
     Dosage: 4 MILLIGRAM, QD
     Dates: start: 20241209, end: 20241216

REACTIONS (3)
  - Colon cancer [Unknown]
  - Malaise [Unknown]
  - Hypertension [Unknown]

NARRATIVE: CASE EVENT DATE: 20241205
